FAERS Safety Report 7485440-9 (Version None)
Quarter: 2011Q2

REPORT INFORMATION
  Report Type: 
  Country: None (occurrence: None)
  Receive Date: 20110517
  Receipt Date: 20110506
  Transmission Date: 20111010
  Serious: Yes (Death, Hospitalization)
  Sender: FDA-Public Use
  Company Number: US-CELGENEUS-163-21880-11051249

PATIENT
  Age: 72 Year
  Sex: Female

DRUGS (6)
  1. SIMVASTATIN [Concomitant]
     Route: 065
  2. RED BLOOD CELLS [Concomitant]
     Dosage: 5 UNITS
     Route: 051
     Dates: start: 20100831
  3. METOPROLOL SUCCINATE [Concomitant]
     Route: 065
  4. POTASSIUM CHLORIDE [Concomitant]
     Route: 065
  5. REVLIMID [Suspect]
     Indication: MULTIPLE MYELOMA
     Dosage: 25 MILLIGRAM
     Route: 048
     Dates: start: 20100801
  6. FUROSEMIDE [Concomitant]
     Route: 065

REACTIONS (5)
  - COLITIS ISCHAEMIC [None]
  - DEATH [None]
  - INTESTINAL PERFORATION [None]
  - POLYP [None]
  - CARDIAC FAILURE CONGESTIVE [None]
